FAERS Safety Report 5382273-4 (Version None)
Quarter: 2007Q3

REPORT INFORMATION
  Report Type: 
  Country: None (occurrence: None)
  Receive Date: 20070709
  Receipt Date: 20070625
  Transmission Date: 20080115
  Serious: Yes (Hospitalization)
  Sender: FDA-Public Use
  Company Number: US-SANOFI-SYNTHELABO-A03200704305

PATIENT
  Sex: Female
  Weight: 63.49 kg

DRUGS (11)
  1. PLAVIX [Suspect]
     Indication: CEREBROVASCULAR ACCIDENT PROPHYLAXIS
     Route: 048
     Dates: start: 20000101, end: 20070311
  2. CALCIUM CHLORIDE [Concomitant]
     Route: 048
  3. CENTRUM SILVER [Concomitant]
     Dosage: UNK
     Route: 048
  4. HYDROCHLOROTHIAZIDE [Concomitant]
     Route: 048
     Dates: start: 20000101
  5. PROPRANOLOL [Concomitant]
     Route: 048
     Dates: start: 20000101
  6. LEVOTHROID [Concomitant]
     Route: 048
     Dates: start: 19670101
  7. LIPITOR [Concomitant]
     Route: 048
     Dates: end: 20070311
  8. LIPITOR [Concomitant]
     Route: 048
     Dates: start: 20070601
  9. ASPIRIN [Concomitant]
     Route: 048
     Dates: start: 19770101, end: 20070311
  10. DARVOCET [Concomitant]
     Route: 065
  11. NEXIUM [Concomitant]
     Dosage: 40 MG/DAY UNTIL 05-JUL-2007
     Route: 048
     Dates: start: 20070311

REACTIONS (2)
  - GASTROOESOPHAGEAL REFLUX DISEASE [None]
  - MALLORY-WEISS SYNDROME [None]
